FAERS Safety Report 4379774-4 (Version None)
Quarter: 2004Q2

REPORT INFORMATION
  Report Type: 
  Country: None (occurrence: None)
  Receive Date: 20040614
  Receipt Date: 20040601
  Transmission Date: 20050107
  Serious: Yes (Hospitalization)
  Sender: FDA-Public Use
  Company Number: 199123

PATIENT
  Sex: Male
  Weight: 90.7194 kg

DRUGS (3)
  1. AVONEX ^BIOGEN^ [Suspect]
     Indication: MULTIPLE SCLEROSIS
     Dosage: 30 MCG QW IM
     Route: 030
     Dates: start: 20010101, end: 20040201
  2. AVONEX ^BIOGEN^ [Suspect]
     Indication: MULTIPLE SCLEROSIS
     Dosage: 30 MCG QW IM
     Route: 030
     Dates: start: 20040201
  3. BLOOD PRESSURE MEDICATION (NOS) [Concomitant]

REACTIONS (7)
  - BLOOD CHOLESTEROL INCREASED [None]
  - CONDITION AGGRAVATED [None]
  - ERYTHEMA [None]
  - FAMILY STRESS [None]
  - FEELING HOT [None]
  - OEDEMA PERIPHERAL [None]
  - TRIGEMINAL NEURALGIA [None]
